FAERS Safety Report 7209720-7 (Version None)
Quarter: 2011Q1

REPORT INFORMATION
  Report Type: 
  Country: None (occurrence: None)
  Receive Date: 20110104
  Receipt Date: 20101231
  Transmission Date: 20110831
  Serious: Yes (Death)
  Sender: FDA-Public Use
  Company Number: US-ASTRAZENECA-2011SE00026

PATIENT
  Age: 40 Year
  Sex: Female

DRUGS (7)
  1. QUETIAPINE [Suspect]
     Route: 048
  2. ACETAMINOPHEN [Suspect]
     Route: 048
  3. BENZODIAZEPINE [Suspect]
     Route: 048
  4. GABAPENTIN [Suspect]
     Route: 048
  5. PHENCYCLIDINE [Suspect]
     Route: 048
  6. ZIPRASIDONE HCL [Suspect]
     Route: 048
  7. OPIOID [Suspect]
     Route: 048

REACTIONS (3)
  - TOXICITY TO VARIOUS AGENTS [None]
  - CARDIO-RESPIRATORY ARREST [None]
  - COMPLETED SUICIDE [None]
